FAERS Safety Report 9096547 (Version 1)
Quarter: 2013Q1

REPORT INFORMATION
  Report Type: Spontaneous
  Country: US (occurrence: None)
  Receive Date: 20130124
  Receipt Date: 20130124
  Transmission Date: 20140127
  Serious: Yes (Other)
  Sender: FDA-Public Use
  Company Number: ADR-2013-00090

PATIENT
  Sex: Male

DRUGS (1)
  1. LIORESAL INTRATHECAL [Suspect]
     Indication: MUSCLE SPASTICITY
     Dosage: 1151 MCG/DAY

REACTIONS (7)
  - Spinal meningeal cyst [None]
  - Device damage [None]
  - Device leakage [None]
  - Drug withdrawal syndrome [None]
  - Muscle spasms [None]
  - Tremor [None]
  - Vomiting [None]
